FAERS Safety Report 23302945 (Version 1)
Quarter: 2023Q4

REPORT INFORMATION
  Report Type: Spontaneous
  Country: BG (occurrence: BG)
  Receive Date: 20231215
  Receipt Date: 20231215
  Transmission Date: 20240110
  Serious: Yes (Other)
  Sender: FDA-Public Use
  Company Number: BG-ASTELLAS-2023US037087

PATIENT
  Age: 67 Year
  Sex: Female

DRUGS (2)
  1. GILTERITINIB [Suspect]
     Active Substance: GILTERITINIB
     Indication: Acute leukaemia
     Dosage: UNK UNK, UNKNOWN FREQ.
     Route: 065
  2. GILTERITINIB [Suspect]
     Active Substance: GILTERITINIB
     Dosage: 2 TABLETS, ONCE DAILY
     Route: 065

REACTIONS (4)
  - Haematotoxicity [Unknown]
  - Clostridium colitis [Unknown]
  - Skin bacterial infection [Unknown]
  - Haemorrhage [Unknown]
